FAERS Safety Report 5849632-4 (Version None)
Quarter: 2008Q3

REPORT INFORMATION
  Report Type: 
  Country: None (occurrence: None)
  Receive Date: 20080819
  Receipt Date: 20080611
  Transmission Date: 20090109
  Serious: No
  Sender: FDA-Public Use
  Company Number: US-AVENTIS-200815034US

PATIENT
  Sex: Female

DRUGS (2)
  1. TAXOTERE [Suspect]
     Dosage: DOSE: UNK
  2. CYTOXAN [Suspect]
     Dosage: DOSE: UNK

REACTIONS (3)
  - DIARRHOEA [None]
  - FATIGUE [None]
  - INSOMNIA [None]
